FAERS Safety Report 19318690 (Version 1)
Quarter: 2021Q2

REPORT INFORMATION
  Report Type: Spontaneous
  Country: US (occurrence: US)
  Receive Date: 20210527
  Receipt Date: 20210527
  Transmission Date: 20210717
  Serious: Yes (Other)
  Sender: FDA-Public Use
  Company Number: US-WELLSPRINGPHARMA-2021-US-010783

PATIENT
  Age: 27 Year
  Sex: Female
  Weight: 61.24 kg

DRUGS (1)
  1. BACTINE MAX [Suspect]
     Active Substance: BENZALKONIUM CHLORIDE\LIDOCAINE HYDROCHLORIDE
     Indication: ACCIDENTAL EXPOSURE TO PRODUCT
     Dosage: MISTAKENLY USED IN PLACE OF CONTACT LENS SOLUTION
     Dates: start: 20210516, end: 20210516

REACTIONS (7)
  - Thermal burns of eye [Unknown]
  - Eye swelling [Recovering/Resolving]
  - Accidental exposure to product [Recovered/Resolved]
  - Intentional product misuse [Recovered/Resolved]
  - Lacrimation increased [Recovering/Resolving]
  - Eye irritation [Recovering/Resolving]
  - Eye pain [Recovering/Resolving]

NARRATIVE: CASE EVENT DATE: 20210516
